FAERS Safety Report 7504241-6 (Version None)
Quarter: 2011Q2

REPORT INFORMATION
  Report Type: 
  Country: None (occurrence: None)
  Receive Date: 20110525
  Receipt Date: 20110513
  Transmission Date: 20111010
  Serious: Yes (Hospitalization)
  Sender: FDA-Public Use
  Company Number: US-BAYER-2011-022973

PATIENT
  Age: 31 Year
  Sex: Female
  Weight: 72.562 kg

DRUGS (11)
  1. EFFEXOR [Concomitant]
     Indication: DEPRESSION
     Dosage: 150 MG, QID
  2. YAZ [Suspect]
     Indication: PREMENSTRUAL SYNDROME
  3. BUSPIRONE HCL [Concomitant]
     Indication: DEPRESSION
     Dosage: 30 MG, QD
     Dates: start: 20020101
  4. METHYLPREDNISOLONE [Concomitant]
     Indication: BACK PAIN
  5. FLEXERIL [Concomitant]
     Indication: BACK PAIN
     Dosage: UNK UNK, PRN
  6. EFFEXOR [Concomitant]
     Indication: ANXIETY
  7. YAZ [Suspect]
     Indication: CONTRACEPTION
     Dosage: UNK
     Dates: start: 20090501, end: 20091201
  8. BUSPIRONE HCL [Concomitant]
     Indication: ANXIETY
  9. OXYCODONE HCL [Concomitant]
     Indication: BACK PAIN
     Dosage: UNK UNK, PRN
  10. CYCLOBENZAPRINE [Concomitant]
     Indication: BACK PAIN
  11. CIPRO [Concomitant]
     Indication: URINARY TRACT INFECTION

REACTIONS (1)
  - PULMONARY EMBOLISM [None]
